FAERS Safety Report 14472794 (Version 1)
Quarter: 2018Q1

REPORT INFORMATION
  Report Type: Spontaneous
  Country: US (occurrence: US)
  Receive Date: 20180201
  Receipt Date: 20180201
  Transmission Date: 20180509
  Serious: No
  Sender: FDA-Public Use
  Company Number: US-KADMON PHARMACEUTICALS, LLC-KAD201708-000966

PATIENT
  Age: 54 Year
  Sex: Male

DRUGS (8)
  1. HYDROXYZINE HYDROCHLORIDE. [Concomitant]
     Active Substance: HYDROXYZINE HYDROCHLORIDE
  2. RIBASPHERE RIBAPAK [Suspect]
     Active Substance: RIBAVIRIN
     Indication: HEPATITIS C
     Dates: start: 2013
  3. HYDROCORTISONE ACETATE/PRAMOCAIBE HYDROCHLORIDE [Concomitant]
  4. TRIAMCINOLONE ACETONIDE. [Concomitant]
     Active Substance: TRIAMCINOLONE ACETONIDE
  5. ANALPRAM [Concomitant]
  6. PEGINTERFERON ALFA-2A. [Suspect]
     Active Substance: PEGINTERFERON ALFA-2A
     Indication: HEPATITIS C
     Dosage: INJECTION
     Dates: start: 20130204
  7. TELAPREVIR [Suspect]
     Active Substance: TELAPREVIR
     Indication: HEPATITIS C
     Dates: start: 2013
  8. FISH OIL [Concomitant]
     Active Substance: FISH OIL

REACTIONS (4)
  - Decreased appetite [Unknown]
  - Back pain [Unknown]
  - Arthralgia [Not Recovered/Not Resolved]
  - Rash [Recovered/Resolved]
